FAERS Safety Report 5040063-6 (Version None)
Quarter: 2006Q2

REPORT INFORMATION
  Report Type: 
  Country: None (occurrence: None)
  Receive Date: 20060630
  Receipt Date: 20060622
  Transmission Date: 20061013
  Serious: Yes (Other)
  Sender: FDA-Public Use
  Company Number: CA-JNJFOC-20060604922

PATIENT
  Sex: Female

DRUGS (1)
  1. REMICADE [Suspect]
     Indication: RHEUMATOID ARTHRITIS
     Route: 042

REACTIONS (5)
  - EYELID OEDEMA [None]
  - INFUSION RELATED REACTION [None]
  - NAUSEA [None]
  - SWOLLEN TONGUE [None]
  - VISION BLURRED [None]
